FAERS Safety Report 9832009 (Version 1)
Quarter: 2014Q1

REPORT INFORMATION
  Report Type: Spontaneous
  Country: US (occurrence: US)
  Receive Date: 20140121
  Receipt Date: 20140121
  Transmission Date: 20141002
  Serious: No
  Sender: FDA-Public Use
  Company Number: US-BAYER-2014-010423

PATIENT
  Age: 82 Year
  Sex: Male
  Weight: 84 kg

DRUGS (10)
  1. ALEVE CAPLET [Suspect]
     Indication: ARTHRITIS
     Dosage: 2 DF, QD
     Route: 048
     Dates: start: 2012
  2. BAYER ASPIRIN REGIMEN ADULT LOW STRENGTH [Concomitant]
  3. VITAMIN D [Concomitant]
  4. CALCIUM [Concomitant]
  5. FISH OIL [Concomitant]
  6. TOPROL [Concomitant]
  7. SIMVASTATIN [Concomitant]
  8. FLOMAX [TAMSULOSIN HYDROCHLORIDE] [Concomitant]
  9. ARICEPT [Concomitant]
  10. FINASTERIDE [Concomitant]

REACTIONS (1)
  - Incorrect drug administration duration [None]
